FAERS Safety Report 21022184 (Version 1)
Quarter: 2022Q2

REPORT INFORMATION
  Report Type: Spontaneous
  Country: US (occurrence: US)
  Receive Date: 20220629
  Receipt Date: 20220629
  Transmission Date: 20220720
  Serious: Yes (Other)
  Sender: FDA-Public Use
  Company Number: US-GSKCCFUS-Case-01414794_AE-81430

PATIENT

DRUGS (2)
  1. TRELEGY ELLIPTA [Suspect]
     Active Substance: FLUTICASONE FUROATE\UMECLIDINIUM BROMIDE\VILANTEROL TRIFENATATE
     Indication: Asthma
     Dosage: 1 PUFF(S), QD, 100/62.5/25 MCG
     Dates: start: 202203
  2. TRELEGY ELLIPTA [Suspect]
     Active Substance: FLUTICASONE FUROATE\UMECLIDINIUM BROMIDE\VILANTEROL TRIFENATATE
     Dosage: UNK, 200/62.5/25 MCG
     Dates: end: 20220620

REACTIONS (14)
  - Atrial fibrillation [Unknown]
  - Tremor [Unknown]
  - Muscle spasms [Unknown]
  - Blood potassium decreased [Unknown]
  - Dehydration [Unknown]
  - Palpitations [Unknown]
  - Heart rate increased [Unknown]
  - Supraventricular tachycardia [Unknown]
  - Insomnia [Unknown]
  - Blood pressure increased [Unknown]
  - Arthralgia [Unknown]
  - Condition aggravated [Unknown]
  - Drug ineffective [Unknown]
  - Product use issue [Unknown]

NARRATIVE: CASE EVENT DATE: 20220101
